FAERS Safety Report 4477107-6 (Version None)
Quarter: 2004Q4

REPORT INFORMATION
  Report Type: 
  Country: None (occurrence: None)
  Receive Date: 20041018
  Receipt Date: 20041008
  Transmission Date: 20050328
  Serious: Yes (Life-Threatening, Hospitalization)
  Sender: FDA-Public Use
  Company Number: 200417717US

PATIENT
  Sex: Female

DRUGS (2)
  1. KETEK [Suspect]
     Dosage: DOSE: UNK
  2. VERAPAMIL [Suspect]
     Dosage: DOSE: UNK

REACTIONS (3)
  - BLOOD PRESSURE DECREASED [None]
  - CARDIO-RESPIRATORY ARREST [None]
  - DRUG INTERACTION [None]
